FAERS Safety Report 14124864 (Version 2)
Quarter: 2017Q4

REPORT INFORMATION
  Report Type: Spontaneous
  Country: GR (occurrence: GR)
  Receive Date: 20171025
  Receipt Date: 20171101
  Transmission Date: 20180321
  Serious: Yes (Hospitalization)
  Sender: FDA-Public Use
  Company Number: GR-ASTRAZENECA-2017SF08226

PATIENT
  Age: 34 Year
  Sex: Male

DRUGS (11)
  1. AMINO ACIDS NOS [Suspect]
     Active Substance: AMINO ACIDS
     Route: 065
  2. MULTIVITAMIN [Suspect]
     Active Substance: VITAMINS
     Route: 065
  3. AMIODARONE [Concomitant]
     Active Substance: AMIODARONE
  4. FOLIC ACID. [Suspect]
     Active Substance: FOLIC ACID
     Route: 065
  5. COENZYME Q10 [Suspect]
     Active Substance: UBIDECARENONE
     Route: 065
  6. IRON [Suspect]
     Active Substance: IRON
     Route: 065
  7. HERBAL NOS [Suspect]
     Active Substance: HERBALS
     Route: 065
  8. OMEGA-3 ACIDS [Suspect]
     Active Substance: OMEGA-3 FATTY ACIDS
     Route: 048
  9. CARNITINE [Suspect]
     Active Substance: CARNITINE
     Route: 065
  10. ELECTROLYTES NOS [Suspect]
     Active Substance: ELECTROLYTES NOS
     Route: 065
  11. ALBUMIN [Suspect]
     Active Substance: ALBUMIN HUMAN
     Route: 065

REACTIONS (1)
  - Cardiomyopathy [Unknown]
